FAERS Safety Report 5373568-9 (Version None)
Quarter: 2007Q2

REPORT INFORMATION
  Report Type: 
  Country: None (occurrence: None)
  Receive Date: 20070626
  Receipt Date: 20070626
  Transmission Date: 20071010
  Serious: No
  Sender: FDA-Public Use
  Company Number: None

PATIENT
  Age: 39 Year
  Sex: Female
  Weight: 44.4525 kg

DRUGS (1)
  1. DOXYCYCLINE [Suspect]
     Indication: LYME DISEASE
     Dosage: 100 MG 2X /DAY PO
     Route: 048
     Dates: start: 20070613, end: 20070618

REACTIONS (6)
  - BLISTER [None]
  - DRUG HYPERSENSITIVITY [None]
  - DRUG INEFFECTIVE [None]
  - ERYTHEMA [None]
  - RASH PRURITIC [None]
  - SKIN DISCOLOURATION [None]
